FAERS Safety Report 25147247 (Version 2)
Quarter: 2025Q3

REPORT INFORMATION
  Report Type: Spontaneous
  Country: JP (occurrence: JP)
  Receive Date: 20250401
  Receipt Date: 20250813
  Transmission Date: 20251021
  Serious: Yes (Congenital Anomaly, Other)
  Sender: ASTELLAS
  Company Number: JP-ASTELLAS-2025-AER-017814

PATIENT
  Sex: Female
  Weight: 2 kg

DRUGS (7)
  1. PROGRAF [Suspect]
     Active Substance: TACROLIMUS
     Indication: Prophylaxis against transplant rejection
     Route: 064
     Dates: start: 20181012
  2. PROGRAF [Suspect]
     Active Substance: TACROLIMUS
     Indication: Liver transplant
  3. BIO-THREE [Concomitant]
     Active Substance: HERBALS
     Indication: Diarrhoea
     Route: 064
     Dates: start: 20181120
  4. URSODIOL [Concomitant]
     Active Substance: URSODIOL
     Indication: Liver disorder
     Route: 064
     Dates: start: 20181120
  5. PANCRELIPASE [Concomitant]
     Active Substance: PANCRELIPASE
     Indication: Diarrhoea
     Route: 064
     Dates: start: 20181120
  6. TETRAFERRIC TRICITRATE DECAHYDRATE [Concomitant]
     Active Substance: TETRAFERRIC TRICITRATE DECAHYDRATE
     Indication: Anaemia of pregnancy
     Route: 064
     Dates: start: 20201220, end: 20210510
  7. OXICONAZOLE NITRATE [Concomitant]
     Active Substance: OXICONAZOLE NITRATE
     Indication: Vulvovaginal candidiasis
     Route: 064
     Dates: start: 20210420, end: 20210420

REACTIONS (3)
  - Gnathoschisis [Recovering/Resolving]
  - Cleft lip [Recovering/Resolving]
  - Foetal exposure during pregnancy [Unknown]

NARRATIVE: CASE EVENT DATE: 20201201
